FAERS Safety Report 10027665 (Version 1)
Quarter: 2014Q1

REPORT INFORMATION
  Report Type: Spontaneous
  Country: US (occurrence: US)
  Receive Date: 20140321
  Receipt Date: 20140321
  Transmission Date: 20141002
  Serious: No
  Sender: FDA-Public Use
  Company Number: US-009507513-1403USA001391

PATIENT
  Sex: Male

DRUGS (5)
  1. ASMANEX TWISTHALER [Suspect]
     Indication: ASTHMA
     Dosage: ^5 INHALATIONS EVERY 12 HOURS^
     Route: 055
     Dates: start: 2014
  2. ASMANEX TWISTHALER [Suspect]
     Dosage: UNK
     Dates: start: 2009
  3. ASMANEX TWISTHALER [Suspect]
     Dosage: UNK
     Dates: start: 2011
  4. ASMANEX TWISTHALER [Suspect]
     Dosage: UNK
     Dates: start: 2012
  5. ASMANEX TWISTHALER [Suspect]
     Dosage: UNK

REACTIONS (5)
  - Dyspnoea [Not Recovered/Not Resolved]
  - Product taste abnormal [Unknown]
  - Drug dose omission [Unknown]
  - Overdose [Unknown]
  - Product quality issue [Unknown]
